FAERS Safety Report 5779581-1 (Version None)
Quarter: 2008Q2

REPORT INFORMATION
  Report Type: 
  Country: None (occurrence: None)
  Receive Date: 20080619
  Receipt Date: 20070824
  Transmission Date: 20081010
  Serious: No
  Sender: FDA-Public Use
  Company Number: US-ASTRAZENECA-2006UW20170

PATIENT
  Age: 53 Year
  Sex: Female
  Weight: 90.7 kg

DRUGS (1)
  1. ATACAND HCT [Suspect]
     Indication: HYPERTENSION
     Dosage: 32 + 12.5 MG
     Route: 048
     Dates: start: 20040101, end: 20070801

REACTIONS (5)
  - BACK PAIN [None]
  - FATIGUE [None]
  - HOT FLUSH [None]
  - MALAISE [None]
  - SINUSITIS [None]
